FAERS Safety Report 6646475-9 (Version None)
Quarter: 2010Q1

REPORT INFORMATION
  Report Type: 
  Country: None (occurrence: None)
  Receive Date: 20100323
  Receipt Date: 20100310
  Transmission Date: 20100710
  Serious: Yes (Other)
  Sender: FDA-Public Use
  Company Number: MA-WATSON-2010-02138

PATIENT
  Age: 35 Year
  Sex: Male

DRUGS (1)
  1. LIDOCAINE HCL [Suspect]
     Indication: LOCAL ANAESTHESIA
     Dosage: 8 ML, SINGLE

REACTIONS (1)
  - BRONCHOSPASM [None]
